FAERS Safety Report 7051936-7 (Version None)
Quarter: 2010Q4

REPORT INFORMATION
  Report Type: 
  Country: None (occurrence: None)
  Receive Date: 20101019
  Receipt Date: 20101014
  Transmission Date: 20110411
  Serious: Yes (Hospitalization, Other)
  Sender: FDA-Public Use
  Company Number: US-MERCK-1006USA00425

PATIENT
  Age: 57 Year
  Sex: Female
  Weight: 55 kg

DRUGS (7)
  1. FOSAMAX [Suspect]
     Indication: OSTEOPENIA
     Route: 048
     Dates: start: 20030429, end: 20090601
  2. SINGULAIR [Concomitant]
     Indication: RESPIRATORY DISORDER
     Route: 065
     Dates: start: 20020101
  3. TRAZODONE HYDROCHLORIDE [Concomitant]
     Route: 065
     Dates: start: 20000101
  4. RESTORIL [Concomitant]
     Route: 065
     Dates: start: 20020101
  5. ADVAIR DISKUS 100/50 [Concomitant]
     Route: 065
     Dates: start: 20000101
  6. PACERONE [Concomitant]
     Route: 065
     Dates: start: 20020101
  7. COUMADIN [Concomitant]
     Route: 065
     Dates: start: 20020101

REACTIONS (35)
  - ABSCESS JAW [None]
  - ABSCESS LIMB [None]
  - ANKLE FRACTURE [None]
  - ANXIETY [None]
  - ARRHYTHMIA [None]
  - ARTHROPOD BITE [None]
  - ATROPHY [None]
  - BRONCHITIS [None]
  - CARDIAC MURMUR [None]
  - CELLULITIS [None]
  - CEREBROVASCULAR ACCIDENT [None]
  - DENTAL CARIES [None]
  - DEPRESSION [None]
  - DIARRHOEA [None]
  - FALL [None]
  - FISTULA [None]
  - GASTROOESOPHAGEAL REFLUX DISEASE [None]
  - HEMIPARESIS [None]
  - HYPERLIPIDAEMIA [None]
  - HYPOAESTHESIA [None]
  - HYPOTENSION [None]
  - IMPAIRED HEALING [None]
  - LACUNAR INFARCTION [None]
  - LYMPHADENOPATHY [None]
  - ORAL DISORDER [None]
  - ORAL INFECTION [None]
  - OSTEOMYELITIS [None]
  - OSTEONECROSIS OF JAW [None]
  - OSTEOPOROSIS [None]
  - RESTLESS LEGS SYNDROME [None]
  - RHINITIS [None]
  - SINUSITIS [None]
  - THROMBOCYTOSIS [None]
  - TRAUMATIC BRAIN INJURY [None]
  - UPPER RESPIRATORY TRACT INFECTION [None]
